FAERS Safety Report 4844849-X (Version None)
Quarter: 2005Q4

REPORT INFORMATION
  Report Type: 
  Country: None (occurrence: None)
  Receive Date: 20051205
  Receipt Date: 20051121
  Transmission Date: 20060501
  Serious: Yes (Death)
  Sender: FDA-Public Use
  Company Number: GB-JNJFOC-20050702077

PATIENT
  Age: 13 Year
  Sex: Male
  Weight: 40 kg

DRUGS (2)
  1. TOPIRAMATE [Suspect]
     Dosage: UP TO, AND INCLUDING THIS DOSE.
     Route: 048
  2. LAMOTRIGINE [Suspect]
     Dosage: UP TO, AND INCLUDING THIS DOSE.
     Route: 048

REACTIONS (4)
  - CONVULSION [None]
  - MYOCARDITIS [None]
  - NYSTAGMUS [None]
  - SUDDEN DEATH [None]
